FAERS Safety Report 4281568-5 (Version None)
Quarter: 2004Q1

REPORT INFORMATION
  Report Type: 
  Country: None (occurrence: None)
  Receive Date: 20040128
  Receipt Date: 20040115
  Transmission Date: 20041129
  Serious: Yes (Other)
  Sender: FDA-Public Use
  Company Number: 12483004

PATIENT
  Sex: Female

DRUGS (7)
  1. CYCLOPHOSPHAMIDE [Suspect]
     Indication: OVARIAN CANCER
     Dates: start: 19980501, end: 19980701
  2. CISPLATIN [Suspect]
  3. PACLITAXEL [Suspect]
  4. FLUOROURACIL [Suspect]
  5. TREOSULFAN [Suspect]
     Indication: STEM CELL TRANSPLANT
     Dates: start: 19980401
  6. RADIATION THERAPY [Suspect]
     Indication: OVARIAN CANCER
     Dates: start: 19990801
  7. FOLINIC ACID (FOLINIC ACID) [Concomitant]

REACTIONS (11)
  - ANAPHYLACTIC SHOCK [None]
  - ARTHRALGIA [None]
  - ASEPTIC NECROSIS BONE [None]
  - DISEASE RECURRENCE [None]
  - LYMPHATIC DISORDER [None]
  - NEOPLASM RECURRENCE [None]
  - OVARIAN CANCER [None]
  - SMALL INTESTINAL RESECTION [None]
  - STEM CELL TRANSPLANT [None]
  - THROMBOCYTOPENIA [None]
  - TUMOUR MARKER INCREASED [None]
